FAERS Safety Report 4687508-9 (Version None)
Quarter: 2005Q2

REPORT INFORMATION
  Report Type: 
  Country: None (occurrence: None)
  Receive Date: 20050609
  Receipt Date: 20011207
  Transmission Date: 20051028
  Serious: Yes (Hospitalization)
  Sender: FDA-Public Use
  Company Number: US-SANOFI-SYNTHELABO-ALTESS-840236005

PATIENT
  Sex: Male
  Weight: 88 kg

DRUGS (9)
  1. ALFUZOSIN [Suspect]
     Route: 048
     Dates: start: 20010831, end: 20011206
  2. VASOTEC [Concomitant]
     Dosage: 10 MG
     Route: 065
     Dates: start: 19900901
  3. COUMADIN [Concomitant]
     Dosage: 5 MG
     Route: 065
     Dates: start: 19900901
  4. ATENOLOL [Concomitant]
     Dosage: 25 MG
     Route: 065
     Dates: start: 19900901
  5. ZOCOR [Concomitant]
     Dosage: 40 MG
     Route: 065
     Dates: start: 19900901
  6. ASPIRIN [Concomitant]
     Dosage: 80 MG
     Route: 065
     Dates: start: 19900901
  7. VITAMIN E [Concomitant]
     Dosage: 400 IU
     Route: 065
     Dates: start: 19950101
  8. ASCORBIC ACID [Concomitant]
     Dosage: 500 MG
     Route: 065
     Dates: start: 19950101
  9. MULTI-VITAMINS [Concomitant]
     Dosage: 1 UNIT
     Route: 065
     Dates: start: 19950101

REACTIONS (4)
  - ACUTE MYOCARDIAL INFARCTION [None]
  - CORONARY ARTERY OCCLUSION [None]
  - HEART RATE DECREASED [None]
  - HYPOTENSION [None]
